FAERS Safety Report 14000511 (Version 1)
Quarter: 2017Q3

REPORT INFORMATION
  Report Type: Spontaneous
  Country: DK (occurrence: DK)
  Receive Date: 20170922
  Receipt Date: 20170922
  Transmission Date: 20171128
  Serious: Yes (Other)
  Sender: FDA-Public Use
  Company Number: DK-SUN PHARMACEUTICAL INDUSTRIES LTD-2015R1-98863

PATIENT
  Age: 44 Year
  Sex: Male

DRUGS (11)
  1. PREGABALIN. [Interacting]
     Active Substance: PREGABALIN
     Dosage: 300 MG, DAILY (225 + 0 + 0 + 75 MG)
     Route: 065
  2. CLOZAPINE. [Suspect]
     Active Substance: CLOZAPINE
     Indication: SCHIZOPHRENIA
     Dosage: 650 MG, DAILY (150 + 0 + 0 + 500 MG)
     Route: 065
  3. PREGABALIN. [Interacting]
     Active Substance: PREGABALIN
     Dosage: 225 MG, DAILY (150 + 0 + 0 + 75 MG )
     Route: 065
  4. LITHIUM. [Concomitant]
     Active Substance: LITHIUM
     Indication: PRODUCT USED FOR UNKNOWN INDICATION
     Dosage: 18 MMOL, QD (0 + 0 + 0 + 18 MMOL)
     Route: 065
  5. SERTINDOLE [Concomitant]
     Active Substance: SERTINDOLE
     Indication: PRODUCT USED FOR UNKNOWN INDICATION
     Dosage: 16 MG, QD (16 + 0 + 0 + 0 MG)
     Route: 065
  6. PREGABALIN. [Interacting]
     Active Substance: PREGABALIN
     Dosage: 75 MG, BID  (75 + 0 + 0 + 75 MG)
     Route: 065
  7. VALPROATE [Concomitant]
     Active Substance: VALPROIC ACID
     Indication: SEIZURE
     Dosage: 300 MG, BID (300 + 0 + 0 + 300 MG)
     Route: 065
  8. CLONAZEPAM. [Concomitant]
     Active Substance: CLONAZEPAM
     Dosage: 0.5 MG, QD (0.5 + 0 + 0 + 0 MG)
     Route: 065
  9. PREGABALIN. [Interacting]
     Active Substance: PREGABALIN
     Indication: ANXIETY
     Dosage: 75 MG, DAILY
     Route: 065
  10. CLONAZEPAM. [Concomitant]
     Active Substance: CLONAZEPAM
     Indication: PRODUCT USED FOR UNKNOWN INDICATION
     Dosage: 0.5 MG, BID (0.5 + 0 + 0 + 0.5 MG)
     Route: 065
  11. BUPRENORPHINE. [Concomitant]
     Active Substance: BUPRENORPHINE
     Indication: PRODUCT USED FOR UNKNOWN INDICATION
     Dosage: UNK
     Route: 065

REACTIONS (9)
  - Fall [Unknown]
  - Somnolence [Unknown]
  - Drug level increased [Recovered/Resolved]
  - Depressed level of consciousness [Unknown]
  - Drug interaction [Recovered/Resolved]
  - Lisfranc fracture [Unknown]
  - Dysarthria [Unknown]
  - Syncope [Unknown]
  - Wound [Unknown]
